FAERS Safety Report 13001143 (Version 1)
Quarter: 2016Q4

REPORT INFORMATION
  Report Type: Spontaneous
  Country: FR (occurrence: FR)
  Receive Date: 20161206
  Receipt Date: 20161206
  Transmission Date: 20170207
  Serious: Yes (Other)
  Sender: FDA-Public Use
  Company Number: FR-ASTELLAS-2016US047496

PATIENT
  Sex: Male

DRUGS (1)
  1. TARCEVA [Suspect]
     Active Substance: ERLOTINIB HYDROCHLORIDE
     Indication: SQUAMOUS CELL CARCINOMA OF LUNG
     Route: 048

REACTIONS (4)
  - Dehydration [Unknown]
  - Oedema peripheral [Unknown]
  - Erythema [Unknown]
  - Proteinuria [Unknown]
